FAERS Safety Report 17795518 (Version 11)
Quarter: 2020Q4

REPORT INFORMATION
  Report Type: Report from Study
  Country: None (occurrence: ES)
  Receive Date: 20200515
  Receipt Date: 20201028
  Transmission Date: 20210113
  Serious: Yes (Other)
  Sender: FDA-Public Use
  Company Number: ES-ABBVIE-20K-144-3401831-00

PATIENT
  Age: 77 Year
  Sex: Female

DRUGS (5)
  1. DUODOPA [Suspect]
     Active Substance: CARBIDOPA\LEVODOPA
     Dosage: MORNING 6.5 ML, CONTINUOUS 3.7 ML/H
     Route: 050
     Dates: start: 20201026
  2. DUODOPA [Suspect]
     Active Substance: CARBIDOPA\LEVODOPA
     Dosage: DOSE READJUSTMENT
     Route: 050
     Dates: start: 20200703, end: 20200706
  3. DUODOPA [Suspect]
     Active Substance: CARBIDOPA\LEVODOPA
     Dosage: LOWERED THE CONTINUOUS DOSE BY 0.3ML / H, REMAINING AT 3.4,ML / H
     Route: 050
     Dates: start: 20200513, end: 20200703
  4. DUODOPA [Suspect]
     Active Substance: CARBIDOPA\LEVODOPA
     Dosage: DOSE READJUSTMENT
     Route: 050
     Dates: start: 20200706, end: 20201026
  5. DUODOPA [Suspect]
     Active Substance: CARBIDOPA\LEVODOPA
     Indication: PARKINSON^S DISEASE
     Route: 050
     Dates: start: 20200207, end: 20200513

REACTIONS (22)
  - Pelvic fracture [Recovering/Resolving]
  - Device-device incompatibility [Recovered/Resolved]
  - Arthralgia [Recovering/Resolving]
  - Immobile [Not Recovered/Not Resolved]
  - Condition aggravated [Unknown]
  - Fall [Not Recovered/Not Resolved]
  - Pain [Recovered/Resolved]
  - Nervousness [Recovered/Resolved]
  - Hyperkinesia [Recovered/Resolved]
  - Hypoaesthesia [Unknown]
  - Tremor [Not Recovered/Not Resolved]
  - Stoma site extravasation [Recovering/Resolving]
  - Therapeutic product effect decreased [Not Recovered/Not Resolved]
  - Mobility decreased [Unknown]
  - Dyskinesia [Not Recovered/Not Resolved]
  - Weight decreased [Unknown]
  - On and off phenomenon [Not Recovered/Not Resolved]
  - Device leakage [Recovered/Resolved]
  - Device dislocation [Recovered/Resolved]
  - Freezing phenomenon [Not Recovered/Not Resolved]
  - Device connection issue [Recovered/Resolved]
  - Device issue [Not Recovered/Not Resolved]

NARRATIVE: CASE EVENT DATE: 2020
